FAERS Safety Report 21462836 (Version 3)
Quarter: 2023Q1

REPORT INFORMATION
  Report Type: Report from Study
  Country: US (occurrence: US)
  Receive Date: 20221017
  Receipt Date: 20230321
  Transmission Date: 20230417
  Serious: No
  Sender: FDA-Public Use
  Company Number: US-ABBVIE-22K-163-4508796-00

PATIENT
  Sex: Male

DRUGS (3)
  1. IMBRUVICA [Suspect]
     Active Substance: IBRUTINIB
     Indication: Chronic lymphocytic leukaemia
     Route: 048
     Dates: start: 20220729
  2. IMBRUVICA [Suspect]
     Active Substance: IBRUTINIB
     Indication: Chronic lymphocytic leukaemia
     Route: 048
     Dates: start: 202207, end: 202207
  3. IMBRUVICA [Suspect]
     Active Substance: IBRUTINIB
     Indication: Chronic lymphocytic leukaemia
     Route: 048
     Dates: start: 202207, end: 202207

REACTIONS (9)
  - Full blood count decreased [Unknown]
  - Feeling abnormal [Unknown]
  - Sluggishness [Recovered/Resolved]
  - Increased tendency to bruise [Unknown]
  - Atypical pneumonia [Unknown]
  - Gout [Unknown]
  - Myalgia [Unknown]
  - Haemorrhage [Unknown]
  - Scab [Unknown]
